FAERS Safety Report 11154221 (Version 1)
Quarter: 2015Q2

REPORT INFORMATION
  Report Type: Spontaneous
  Country: US (occurrence: US)
  Receive Date: 20150602
  Receipt Date: 20150602
  Transmission Date: 20150821
  Serious: No
  Sender: FDA-Public Use
  Company Number: US-NOVEN PHARMACEUTICALS, INC.-14US010713

PATIENT
  Age: 16 Year
  Sex: Male
  Weight: 73.47 kg

DRUGS (3)
  1. DAYTRANA [Suspect]
     Active Substance: METHYLPHENIDATE
     Indication: ATTENTION DEFICIT/HYPERACTIVITY DISORDER
     Dosage: 10 MG, DAILY
     Route: 062
     Dates: start: 20141015
  2. KLONOPIN [Concomitant]
     Active Substance: CLONAZEPAM
     Indication: ATTENTION DEFICIT/HYPERACTIVITY DISORDER
     Dosage: 1/2 TABLET
     Route: 048
     Dates: start: 201407
  3. SLEEP AID                          /00000402/ [Concomitant]
     Active Substance: DIPHENHYDRAMINE HYDROCHLORIDE
     Indication: INSOMNIA
     Dosage: UNK
     Route: 048
     Dates: start: 201407

REACTIONS (5)
  - Drug prescribing error [Not Recovered/Not Resolved]
  - No adverse event [None]
  - Incorrect product storage [Not Recovered/Not Resolved]
  - Drug administration error [Not Recovered/Not Resolved]
  - Product quality issue [Not Recovered/Not Resolved]

NARRATIVE: CASE EVENT DATE: 20141015
